FAERS Safety Report 6526875-8 (Version None)
Quarter: 2010Q1

REPORT INFORMATION
  Report Type: 
  Country: None (occurrence: None)
  Receive Date: 20100105
  Receipt Date: 20091217
  Transmission Date: 20100710
  Serious: Yes (Other)
  Sender: FDA-Public Use
  Company Number: PHEH2008US03322

PATIENT
  Sex: Female

DRUGS (29)
  1. ZELNORM [Suspect]
     Indication: INTESTINAL FUNCTIONAL DISORDER
     Dosage: 6 MG, BID
     Route: 048
     Dates: start: 20050302
  2. AMBIEN [Concomitant]
     Dosage: 10 MG, QHS
  3. KEPPRA [Concomitant]
     Indication: CONVULSION
     Dosage: 500 MG, BID
  4. KEPPRA [Concomitant]
     Dosage: 1500 MG, QD
  5. ASPIRIN [Concomitant]
     Dosage: 325 MG, QD
  6. CYMBALTA [Concomitant]
     Dosage: 30 MG, QHS
  7. GLUCOPHAGE [Concomitant]
     Dosage: 750 MG, QHS
  8. VYTORIN [Concomitant]
     Dosage: 10/20 UNK, UNK
  9. VERAPAMIL [Concomitant]
     Dosage: 180 MG, QD
  10. CLARITIN [Concomitant]
  11. PROTONIX [Concomitant]
  12. ZETIA [Concomitant]
     Dosage: 10 MG, QD
  13. LISINOPRIL [Concomitant]
     Dosage: 40 MG, QD
  14. KLOR-CON [Concomitant]
     Dosage: 20 MEQ, QD
  15. HYDROCHLOROTHIAZIDE [Concomitant]
     Dosage: 25 MG, QD
  16. METFORMIN [Concomitant]
     Dosage: 750 MG, QD
  17. TOPAMAX [Concomitant]
     Dosage: 25 MG, BID
  18. TOPAMAX [Concomitant]
     Dosage: 50 MG, UNK
  19. RELPAX [Concomitant]
  20. METHOCARBAMOL [Concomitant]
     Indication: MUSCLE RELAXANT THERAPY
     Dosage: 750 MG, QD
  21. MAGNESIUM [Concomitant]
     Dosage: 64 MG, QD
  22. FLEXERIL [Concomitant]
     Dosage: 5 MG, QD
  23. CRESTOR [Concomitant]
     Dosage: 10 MG, UNK
  24. PRINIVIL [Concomitant]
     Dosage: 10 UNK, UNK
  25. VICODIN [Concomitant]
  26. SOMA [Concomitant]
     Indication: BACK PAIN
  27. PERCOCET [Concomitant]
     Indication: BACK PAIN
  28. NORCO [Concomitant]
     Dosage: 7.5/325 MG
  29. STEROIDS NOS [Concomitant]

REACTIONS (18)
  - BACK PAIN [None]
  - CEREBROVASCULAR ACCIDENT [None]
  - CONSTIPATION [None]
  - CONVULSION [None]
  - DEPRESSION [None]
  - DIZZINESS [None]
  - DRUG INEFFECTIVE [None]
  - FALL [None]
  - HEADACHE [None]
  - HIGH FREQUENCY ABLATION [None]
  - HYPERCHOLESTEROLAEMIA [None]
  - HYPERLIPIDAEMIA [None]
  - HYPERTENSION [None]
  - HYPOKALAEMIA [None]
  - INSOMNIA [None]
  - INTERVERTEBRAL DISC DEGENERATION [None]
  - ISCHAEMIA [None]
  - SYNCOPE [None]
